FAERS Safety Report 5699124-0 (Version None)
Quarter: 2008Q2

REPORT INFORMATION
  Report Type: 
  Country: None (occurrence: None)
  Receive Date: 20080407
  Receipt Date: 20080407
  Transmission Date: 20081010
  Serious: Yes (Other)
  Sender: FDA-Public Use
  Company Number: None

PATIENT
  Sex: Female
  Weight: 77.1115 kg

DRUGS (1)
  1. CHANTIX VARENICLING 1 MG PFIZER LABS [Suspect]
     Indication: SMOKING CESSATION THERAPY
     Dosage: 1 TAB ONCE A DAY
     Dates: start: 20071120, end: 20080120

REACTIONS (2)
  - ABDOMINAL PAIN UPPER [None]
  - ABNORMAL DREAMS [None]
